FAERS Safety Report 10174945 (Version 2)
Quarter: 2014Q2

REPORT INFORMATION
  Report Type: Spontaneous
  Country: ES (occurrence: ES)
  Receive Date: 20140515
  Receipt Date: 20140515
  Transmission Date: 20141212
  Serious: Yes (Hospitalization, Other)
  Sender: FDA-Public Use
  Company Number: ES-009507513-2012SP002270

PATIENT
  Age: 39 Year
  Sex: Female
  Weight: 60.7 kg

DRUGS (1)
  1. IMPLANON [Suspect]
     Indication: CONTRACEPTION
     Dosage: 68 MG, UNK
     Route: 059
     Dates: start: 20110722, end: 201201

REACTIONS (7)
  - Abortion spontaneous [Unknown]
  - Pregnancy with implant contraceptive [Unknown]
  - Mental disorder [Unknown]
  - Uterine dilation and curettage [Unknown]
  - Medical device complication [Unknown]
  - Medical device complication [Unknown]
  - Medical device complication [Unknown]
